FAERS Safety Report 19172403 (Version 3)
Quarter: 2022Q2

REPORT INFORMATION
  Report Type: Spontaneous
  Country: US (occurrence: US)
  Receive Date: 20210423
  Receipt Date: 20220520
  Transmission Date: 20220721
  Serious: No
  Sender: FDA-Public Use
  Company Number: US-SA-SAC20210422000637

PATIENT
  Age: 60 Year
  Sex: Female

DRUGS (31)
  1. AUBAGIO [Suspect]
     Active Substance: TERIFLUNOMIDE
     Indication: Multiple sclerosis
     Dosage: 14 MG, QD
     Route: 048
     Dates: start: 201811
  2. OCTAGAM IMMUNE GLOBULIN (HUMAN) [Concomitant]
     Active Substance: HUMAN IMMUNOGLOBULIN G
     Dosage: 20 MG
  3. REBIF [Concomitant]
     Active Substance: INTERFERON BETA-1A
  4. VENLAFAXINE HCL [Concomitant]
     Active Substance: VENLAFAXINE HYDROCHLORIDE
     Dosage: 75 MG
  5. BACLOFEN [Concomitant]
     Active Substance: BACLOFEN
     Dosage: 10 MG
  6. GABAPENTIN [Concomitant]
     Active Substance: GABAPENTIN
  7. ONDANSETRON HCL [Concomitant]
     Active Substance: ONDANSETRON HYDROCHLORIDE
     Dosage: 4 MG
  8. VITAMIN D2 [Concomitant]
     Active Substance: ERGOCALCIFEROL
     Dosage: 1250 UG
  9. MOVANTIK [Concomitant]
     Active Substance: NALOXEGOL OXALATE
     Dosage: 25 MG
  10. ACETAMINOPHEN [Concomitant]
     Active Substance: ACETAMINOPHEN
  11. SALAGEN [Concomitant]
     Active Substance: PILOCARPINE HYDROCHLORIDE
     Dosage: 5 MG
  12. DIPHENHYDRAMINE [Concomitant]
     Active Substance: DIPHENHYDRAMINE
  13. LIDOCAINE [Concomitant]
     Active Substance: LIDOCAINE
     Dosage: 4 %
  14. EPINEPHRINE [Concomitant]
     Active Substance: EPINEPHRINE
  15. HYDRALAZINE HCL [Concomitant]
     Active Substance: HYDRALAZINE HYDROCHLORIDE
     Dosage: 10MG
  16. ELETRIPTAN [Concomitant]
     Active Substance: ELETRIPTAN
     Dosage: 40MG
  17. DIAZEPAM [Concomitant]
     Active Substance: DIAZEPAM
     Dosage: 10 MG
  18. CLOTRIMAZOLE [Concomitant]
     Active Substance: CLOTRIMAZOLE
     Dosage: 1 %
  19. BIOTIN [Concomitant]
     Active Substance: BIOTIN
     Dosage: 10 MG
  20. LIDODERM [Concomitant]
     Active Substance: LIDOCAINE
     Dosage: 400MG
  21. TOVIAZ [Concomitant]
     Active Substance: FESOTERODINE FUMARATE
     Dosage: 8 G
  22. MYRBETRIQ [Concomitant]
     Active Substance: MIRABEGRON
     Dosage: 50 MG
  23. LORATADINE [Concomitant]
     Active Substance: LORATADINE
     Dosage: 50MG
  24. VITAMIN B1 [Concomitant]
     Active Substance: THIAMINE HYDROCHLORIDE
     Dosage: 10000 U
  25. TOCOPHEROL [Concomitant]
     Active Substance: TOCOPHEROL
     Dosage: 1000 U
  26. OMEGA 3 + VITAMIN D [Concomitant]
     Dosage: 150-500 MG
  27. VITAMINS [Concomitant]
     Active Substance: VITAMINS
  28. POLYVINYL ALCOHOL\POVIDONE [Concomitant]
     Active Substance: POLYVINYL ALCOHOL\POVIDONE
     Dosage: 0.1 %- 0.3 %
  29. PROBIOTICS NOS [Concomitant]
     Active Substance: PROBIOTICS NOS
  30. SODIUM CHLORIDE [Concomitant]
     Active Substance: SODIUM CHLORIDE
  31. MAGNESIUM [Concomitant]
     Active Substance: MAGNESIUM
     Dosage: 400 MG

REACTIONS (5)
  - Tinnitus [Not Recovered/Not Resolved]
  - Heart rate increased [Not Recovered/Not Resolved]
  - Back pain [Unknown]
  - Blood pressure increased [Not Recovered/Not Resolved]
  - Headache [Not Recovered/Not Resolved]

NARRATIVE: CASE EVENT DATE: 20210401
